FAERS Safety Report 8993496 (Version 1)
Quarter: 2013Q1

REPORT INFORMATION
  Report Type: Spontaneous
  Country: SG (occurrence: SG)
  Receive Date: 20130102
  Receipt Date: 20130102
  Transmission Date: 20140127
  Serious: Yes (Other)
  Sender: FDA-Public Use
  Company Number: SG-BAYER-2012-135369

PATIENT
  Age: 34 Year
  Sex: Female

DRUGS (2)
  1. ACETYLSALICYLIC ACID({=100 MG) [Suspect]
  2. KETOROLAC [Suspect]

REACTIONS (3)
  - Periorbital oedema [Unknown]
  - Rash [Unknown]
  - Dyspnoea [Unknown]
